FAERS Safety Report 15167369 (Version 2)
Quarter: 2019Q1

REPORT INFORMATION
  Report Type: Spontaneous
  Country: DE (occurrence: DE)
  Receive Date: 20180719
  Receipt Date: 20190111
  Transmission Date: 20190417
  Serious: Yes (Death, Life-Threatening, Hospitalization, Other)
  Sender: FDA-Public Use
  Company Number: DE-PFIZER INC-2018290097

PATIENT
  Age: 73 Year
  Sex: Female
  Weight: 106 kg

DRUGS (49)
  1. 5-FU [Suspect]
     Active Substance: FLUOROURACIL
     Dosage: 1280 MG BOLUS1900 MG DRIP
     Route: 042
     Dates: start: 20131210, end: 20131211
  2. 5-FU [Suspect]
     Active Substance: FLUOROURACIL
     Dosage: 1600 MG BOLUS 2400 MG DRIP EVERY 2 WEEKS
     Route: 042
     Dates: start: 20140326, end: 20140327
  3. 5-FU [Suspect]
     Active Substance: FLUOROURACIL
     Dosage: 720 MG BOLUS 1800 MG DRIP EVERY 2 WEEKS
     Route: 042
     Dates: start: 20140617, end: 20140618
  4. 5-FU [Suspect]
     Active Substance: FLUOROURACIL
     Dosage: 720 MG BOLUS 1800 MG DRIP EVERY 2 WEEKS
     Route: 042
     Dates: start: 20140822, end: 20140823
  5. RAMIPRIL. [Concomitant]
     Active Substance: RAMIPRIL
     Indication: HYPERTENSION
     Dosage: DAILY DOSE: 2.5 MG MILLGRAM(S) EVERY DAYS
     Route: 048
  6. CALCIUM FOLINATE [Suspect]
     Active Substance: LEUCOVORIN CALCIUM
     Dosage: 720 MG, UNK
     Route: 042
     Dates: start: 20140617, end: 20140618
  7. CALCIUM FOLINATE [Suspect]
     Active Substance: LEUCOVORIN CALCIUM
     Dosage: 800 MG, UNK
     Route: 042
     Dates: start: 20131029, end: 20131030
  8. CALCIUM FOLINATE [Suspect]
     Active Substance: LEUCOVORIN CALCIUM
     Dosage: 720 MG, UNK
     Route: 042
     Dates: start: 20140701, end: 20140702
  9. CALCIUM FOLINATE [Suspect]
     Active Substance: LEUCOVORIN CALCIUM
     Dosage: 720 MG, UNK
     Route: 042
     Dates: start: 20140916, end: 20140917
  10. OXALIPLATIN. [Suspect]
     Active Substance: OXALIPLATIN
     Dosage: 170 MG, UNK
     Route: 042
     Dates: start: 20131029, end: 20131029
  11. 5-FU [Suspect]
     Active Substance: FLUOROURACIL
     Indication: COLORECTAL CANCER METASTATIC
     Dosage: 1600 MG BOLUS 2400 MG DRIP
     Route: 042
     Dates: start: 20131008, end: 20131009
  12. 5-FU [Suspect]
     Active Substance: FLUOROURACIL
     Dosage: 1600 MG BOLUS, 2400 MG DRIP EVERY 2 WEEKS
     Route: 042
     Dates: start: 20140415, end: 20140415
  13. 5-FU [Suspect]
     Active Substance: FLUOROURACIL
     Dosage: 720 MG BOLUS, 1800 MG DRIP EVERY 2 WEEKS
     Route: 042
     Dates: start: 20140603, end: 20140604
  14. AVASTIN [Suspect]
     Active Substance: BEVACIZUMAB
     Dosage: 420 MG, CYCLIC (DAILY DOSE: 420 MG, EVERY 2 WEEKS)
     Route: 042
     Dates: start: 20131210, end: 20131210
  15. SODIUM CHLORIDE. [Concomitant]
     Active Substance: SODIUM CHLORIDE
     Indication: BLOOD CREATININE INCREASED
     Dosage: UNK
     Route: 042
     Dates: start: 20141001, end: 20141001
  16. NOVAMINSULFON [Concomitant]
     Active Substance: METAMIZOLE
     Indication: PAIN
     Dosage: DAILY DOSE: 90 GTT DROP(S) EVERY DAYS
     Route: 048
  17. CALCIUM FOLINATE [Suspect]
     Active Substance: LEUCOVORIN CALCIUM
     Indication: COLORECTAL CANCER METASTATIC
     Dosage: 800 MG, UNK
     Route: 042
     Dates: start: 20131008, end: 20131009
  18. CALCIUM FOLINATE [Suspect]
     Active Substance: LEUCOVORIN CALCIUM
     Dosage: 640 MG, UNK
     Route: 042
     Dates: start: 20140121, end: 20140122
  19. CALCIUM FOLINATE [Suspect]
     Active Substance: LEUCOVORIN CALCIUM
     Dosage: 720 MG, UNK
     Route: 042
     Dates: start: 20140715, end: 20140716
  20. OXALIPLATIN. [Suspect]
     Active Substance: OXALIPLATIN
     Indication: COLORECTAL CANCER METASTATIC
     Dosage: 170 MG, UNK
     Route: 042
     Dates: start: 20131008, end: 20131008
  21. OXALIPLATIN. [Suspect]
     Active Substance: OXALIPLATIN
     Dosage: 140 MG, CYCLIC (EVERY 2 WEEKS)
     Route: 042
     Dates: start: 20140121, end: 20140121
  22. 5-FU [Suspect]
     Active Substance: FLUOROURACIL
     Dosage: 1280 MG BOLUS 1900 MG DRIP
     Route: 042
     Dates: start: 20140121, end: 20140122
  23. 5-FU [Suspect]
     Active Substance: FLUOROURACIL
     Dosage: 720 MG BOLUS 1800 MG DRIP EVERY 2 WEEKS
     Route: 042
     Dates: start: 20140715, end: 20140716
  24. LONQUEX [Concomitant]
     Active Substance: LIPEGFILGRASTIM
     Indication: PROPHYLAXIS
     Dosage: UNK
     Route: 058
     Dates: start: 20140716, end: 20140716
  25. OPIUM TINCTURE [Concomitant]
     Active Substance: MORPHINE
     Dosage: UNK
     Route: 048
     Dates: start: 20140227
  26. CALCIUM FOLINATE [Suspect]
     Active Substance: LEUCOVORIN CALCIUM
     Dosage: 640 MG, UNK
     Route: 042
     Dates: start: 20131210, end: 20131211
  27. CALCIUM FOLINATE [Suspect]
     Active Substance: LEUCOVORIN CALCIUM
     Dosage: 800 MG, UNK
     Route: 042
     Dates: start: 20140415, end: 20140416
  28. URO-TABLINEN [Concomitant]
     Indication: URINARY TRACT INFECTION
     Dosage: DAILY DOSE: 50 MG MILLGRAM(S) EVERY DAYS
     Route: 048
  29. CALCIUM FOLINATE [Suspect]
     Active Substance: LEUCOVORIN CALCIUM
     Dosage: 800 MG, CYCLIC (DAILY DOSE: 800 MG, EVERY 2 WEEKS)
     Route: 042
     Dates: start: 20140326, end: 20140327
  30. OXALIPLATIN. [Suspect]
     Active Substance: OXALIPLATIN
     Dosage: 140 MG, UNK
     Route: 042
     Dates: start: 20131119, end: 20131119
  31. OXALIPLATIN. [Suspect]
     Active Substance: OXALIPLATIN
     Dosage: 140 MG, CYCLIC (DAILY DOSE: 140 MG, EVERY 2 WEEKS)
     Route: 042
     Dates: start: 20140326, end: 20140327
  32. 5-FU [Suspect]
     Active Substance: FLUOROURACIL
     Dosage: 720 MG BOLUS, 1800 MG DRIP EVERY 2 WEEKS
     Route: 042
     Dates: start: 20140930, end: 20141001
  33. AVASTIN [Suspect]
     Active Substance: BEVACIZUMAB
     Indication: COLORECTAL CANCER METASTATIC
     Dosage: 530 MG, CYCLIC (DAILY DOSE: 530 MG, EVERY 2 WEEKS)
     Route: 042
     Dates: start: 20131008, end: 20131008
  34. NEULASTA [Concomitant]
     Active Substance: PEGFILGRASTIM
     Indication: PROPHYLAXIS
     Dosage: DAILY DOSE: 6 MG MILLGRAM(S) EVERY DAYS
     Route: 058
     Dates: start: 20140605, end: 20140703
  35. CALCIUM FOLINATE [Suspect]
     Active Substance: LEUCOVORIN CALCIUM
     Dosage: 640 MG, UNK
     Route: 042
     Dates: start: 20140211, end: 20140212
  36. CALCIUM FOLINATE [Suspect]
     Active Substance: LEUCOVORIN CALCIUM
     Dosage: 720 MG, UNK
     Route: 042
     Dates: start: 20140822, end: 20140823
  37. L-THYROXIN [Concomitant]
     Active Substance: LEVOTHYROXINE SODIUM
     Indication: HYPOTHYROIDISM
     Dosage: DAILY DOSE: 50 ?G MICROGRAM(S) EVERY DAYS
     Route: 048
  38. CALCIUM FOLINATE [Suspect]
     Active Substance: LEUCOVORIN CALCIUM
     Dosage: 640 MG, UNK
     Route: 042
     Dates: start: 20131119, end: 20131120
  39. OXALIPLATIN. [Suspect]
     Active Substance: OXALIPLATIN
     Dosage: 140 MG, UNK
     Route: 042
     Dates: start: 20131210, end: 20131210
  40. OXALIPLATIN. [Suspect]
     Active Substance: OXALIPLATIN
     Dosage: 140 MG, UNK
     Route: 042
     Dates: start: 20140211, end: 20140211
  41. 5-FU [Suspect]
     Active Substance: FLUOROURACIL
     Dosage: 1600 MG BOLUS, 2400 MG DRIP
     Route: 042
     Dates: start: 20131029, end: 20131030
  42. 5-FU [Suspect]
     Active Substance: FLUOROURACIL
     Dosage: 1280 MG BOLUS,1900 MG DRIP
     Route: 042
     Dates: start: 20140211, end: 20140212
  43. 5-FU [Suspect]
     Active Substance: FLUOROURACIL
     Dosage: 720 MG BOLUS, 1800 MG DRIP EVERY 2 WEEKS
     Route: 042
     Dates: start: 20140701, end: 20140702
  44. 5-FU [Suspect]
     Active Substance: FLUOROURACIL
     Dosage: 720 MG BOLUS1800 MG DRIP EVERY 2 WEEKS
     Route: 042
     Dates: start: 20140916, end: 20140917
  45. GLANDOMED [Concomitant]
     Indication: MUCOSAL INFLAMMATION
     Dosage: UNK
     Route: 065
     Dates: start: 20131029
  46. PANTOZOL [Concomitant]
     Active Substance: PANTOPRAZOLE SODIUM
     Indication: PROPHYLAXIS
     Dosage: DAILY DOSE: 40 MG MILLGRAM(S) EVERY DAYS
     Route: 048
  47. CALCIUM FOLINATE [Suspect]
     Active Substance: LEUCOVORIN CALCIUM
     Dosage: 720 MG, UNK
     Route: 042
     Dates: start: 20140603, end: 20140604
  48. CALCIUM FOLINATE [Suspect]
     Active Substance: LEUCOVORIN CALCIUM
     Dosage: 720 MG, UNK
     Route: 042
     Dates: start: 20140930, end: 20141001
  49. 5-FU [Suspect]
     Active Substance: FLUOROURACIL
     Dosage: 1280 MG BOLUS, 1900 MG DRIP
     Route: 042
     Dates: start: 20131119, end: 20131120

REACTIONS (7)
  - Neutropenia [Recovered/Resolved]
  - Neoplasm progression [Fatal]
  - Pulmonary embolism [Recovered/Resolved]
  - Neutropenia [Recovered/Resolved]
  - Diarrhoea [Recovered/Resolved]
  - Febrile neutropenia [Recovered/Resolved]
  - Anaemia [Recovered/Resolved]

NARRATIVE: CASE EVENT DATE: 20131030
